FAERS Safety Report 12446794 (Version 2)
Quarter: 2016Q2

REPORT INFORMATION
  Report Type: Report from Study
  Country: US (occurrence: US)
  Receive Date: 20160608
  Receipt Date: 20160614
  Transmission Date: 20160815
  Serious: Yes (Death)
  Sender: FDA-Public Use
  Company Number: GXBR2016US002012

PATIENT
  Sex: Female

DRUGS (1)
  1. OMNITROPE [Suspect]
     Active Substance: SOMATROPIN
     Indication: DWARFISM
     Dosage: UNK DF, UNK
     Route: 065
     Dates: start: 201406

REACTIONS (2)
  - Graft versus host disease in lung [Fatal]
  - Leukaemia [Fatal]
